FAERS Safety Report 7978468-3 (Version None)
Quarter: 2011Q4

REPORT INFORMATION
  Report Type: 
  Country: None (occurrence: None)
  Receive Date: 20111214
  Receipt Date: 20111201
  Transmission Date: 20120403
  Serious: Yes (Other)
  Sender: FDA-Public Use
  Company Number: ES-ELI_LILLY_AND_COMPANY-ES201112000143

PATIENT
  Age: 13 Year
  Sex: Male

DRUGS (2)
  1. STRATTERA [Suspect]
     Indication: CONDUCT DISORDER
     Dosage: 80 MG, UNKNOWN
     Route: 048
     Dates: start: 20110721
  2. RUBIFEN [Concomitant]
     Indication: CONDUCT DISORDER
     Dosage: 10 MG, UNK
     Route: 048
     Dates: start: 20110721, end: 20111001

REACTIONS (2)
  - HALLUCINATION [None]
  - NERVOUSNESS [None]
